FAERS Safety Report 5168824-3 (Version None)
Quarter: 2006Q4

REPORT INFORMATION
  Report Type: 
  Country: None (occurrence: None)
  Receive Date: 20061205
  Receipt Date: 20061205
  Transmission Date: 20070319
  Serious: Yes (Hospitalization)
  Sender: FDA-Public Use
  Company Number: None

PATIENT
  Age: 71 Year
  Sex: Male
  Weight: 114.3065 kg

DRUGS (11)
  1. LISINOPRIL [Suspect]
     Indication: HYPERTENSION
     Dosage: 10 MG DAILY PO
     Route: 048
     Dates: start: 20051001, end: 20061130
  2. NAPROXEN [Suspect]
     Indication: BACK PAIN
     Dosage: 500 MG  BID  PO
     Route: 048
     Dates: start: 20060619, end: 20061130
  3. DIPHENHYDRAMINE HCL [Concomitant]
  4. FELODIPINE [Concomitant]
  5. FOLIC ACID [Concomitant]
  6. LORTAB [Concomitant]
  7. METOPROLOL SUCCINATE [Concomitant]
  8. MORPHINE [Concomitant]
  9. OMEPRAZOLE [Concomitant]
  10. TERAZOSIN HCL [Concomitant]
  11. THIAMINE [Concomitant]

REACTIONS (4)
  - CONTRAST MEDIA REACTION [None]
  - KIDNEY INFECTION [None]
  - RENAL FAILURE ACUTE [None]
  - RENAL TUBULAR NECROSIS [None]
